FAERS Safety Report 8597667-3 (Version None)
Quarter: 2012Q3

REPORT INFORMATION
  Report Type: 
  Country: None (occurrence: None)
  Receive Date: 20120816
  Receipt Date: 20120808
  Transmission Date: 20120928
  Serious: Yes (Other)
  Sender: FDA-Public Use
  Company Number: US-BAYER-2012-082871

PATIENT
  Sex: Male

DRUGS (2)
  1. XARELTO [Interacting]
     Indication: PRODUCT USED FOR UNKNOWN INDICATION
     Dosage: UNK
     Route: 048
     Dates: start: 20111201, end: 20120801
  2. ALEVE (CAPLET) [Suspect]

REACTIONS (3)
  - URINARY TRACT INFECTION [None]
  - ADVERSE EVENT [None]
  - BLOOD URINE PRESENT [None]
